FAERS Safety Report 8993361 (Version 1)
Quarter: 2013Q1

REPORT INFORMATION
  Report Type: Report from Study
  Country: US (occurrence: US)
  Receive Date: 20130102
  Receipt Date: 20130102
  Transmission Date: 20140127
  Serious: Yes (Other)
  Sender: FDA-Public Use
  Company Number: US-PFIZER INC-2012331266

PATIENT
  Sex: 0
  Weight: 1.89 kg

DRUGS (2)
  1. CARBOPLATIN [Suspect]
     Indication: OVARIAN CANCER
     Dosage: UNK
     Route: 064
  2. PACLITAXEL [Suspect]
     Indication: OVARIAN CANCER
     Route: 064

REACTIONS (2)
  - Maternal exposure timing unspecified [Unknown]
  - Foetal growth restriction [Unknown]
